FAERS Safety Report 12182480 (Version 1)
Quarter: 2016Q1

REPORT INFORMATION
  Report Type: Spontaneous
  Country: US (occurrence: US)
  Receive Date: 20160316
  Receipt Date: 20160316
  Transmission Date: 20160526
  Serious: Yes (Death)
  Sender: FDA-Public Use
  Company Number: US-CIPLA LTD.-2016US02365

PATIENT

DRUGS (3)
  1. IRINOTECAN [Suspect]
     Active Substance: IRINOTECAN
     Indication: GLIOMA
     Dosage: 125 MG/M2, ON DAYS 1 AND 15, EVERY 28 DAYS, MAINTAINANCE DOSE
     Route: 042
  2. BEVACIZUMAB [Suspect]
     Active Substance: BEVACIZUMAB
     Indication: GLIOMA
     Dosage: 10 MG/KG, ON DAYS 1, 15, 29 AND 43
     Route: 065
  3. BEVACIZUMAB [Suspect]
     Active Substance: BEVACIZUMAB
     Dosage: 10 MG/KG, MAINTAINANCE DOSE
     Route: 065

REACTIONS (1)
  - Death [Fatal]
